FAERS Safety Report 9880980 (Version 1)
Quarter: 2014Q1

REPORT INFORMATION
  Report Type: Spontaneous
  Country: US (occurrence: US)
  Receive Date: 20140207
  Receipt Date: 20140207
  Transmission Date: 20141002
  Serious: No
  Sender: FDA-Public Use
  Company Number: US-009507513-1402USA002731

PATIENT
  Sex: Female

DRUGS (1)
  1. MIRALAX [Suspect]
     Indication: INFREQUENT BOWEL MOVEMENTS
     Dosage: 17 G, QD
     Route: 048
     Dates: start: 20140123

REACTIONS (3)
  - Abdominal pain upper [Unknown]
  - Flatulence [Unknown]
  - Drug effect decreased [Unknown]
